FAERS Safety Report 6280312-X (Version None)
Quarter: 2009Q3

REPORT INFORMATION
  Report Type: 
  Country: None (occurrence: None)
  Receive Date: 20090724
  Receipt Date: 20070716
  Transmission Date: 20100115
  Serious: Yes (Other)
  Sender: FDA-Public Use
  Company Number: US-ASTRAZENECA-2007UW02065

PATIENT
  Age: 481 Month
  Sex: Male
  Weight: 79.4 kg

DRUGS (26)
  1. SEROQUEL [Suspect]
     Indication: MAJOR DEPRESSION
     Dosage: 25-125MG
     Route: 048
     Dates: start: 19990329
  2. SEROQUEL [Suspect]
     Indication: PAIN
     Dosage: 25-125MG
     Route: 048
     Dates: start: 19990329
  3. LITHIUM CARBONATE [Concomitant]
     Route: 048
     Dates: start: 20040301, end: 20060601
  4. NEURONTIN [Concomitant]
     Route: 065
  5. NAPROXEN [Concomitant]
     Route: 065
  6. ESKALITH [Concomitant]
     Route: 065
  7. LORAZEPAM [Concomitant]
     Route: 065
  8. EFFEXOR [Concomitant]
     Route: 065
  9. WELLBUTRIN [Concomitant]
     Route: 065
  10. OXYCONTIN [Concomitant]
     Dosage: 20-40MG
     Route: 065
  11. TRIMOX [Concomitant]
     Route: 065
  12. ROXICODONE [Concomitant]
     Route: 065
  13. VICOPROFEN [Concomitant]
     Route: 065
  14. AMBIEN [Concomitant]
     Route: 065
  15. GEMFIBROZIL [Concomitant]
     Route: 065
  16. VIAGRA [Concomitant]
     Route: 065
  17. NORVASC [Concomitant]
     Route: 065
  18. GLUCOPHAGE [Concomitant]
     Route: 065
  19. LOTREL [Concomitant]
     Route: 065
  20. ZOCOR [Concomitant]
     Route: 065
  21. ALPRAZOLAM [Concomitant]
     Route: 065
  22. DIOVAN [Concomitant]
     Route: 065
  23. ACTOPLUS MET [Concomitant]
     Route: 065
  24. VYTORIN [Concomitant]
     Route: 065
  25. LIPITOR [Concomitant]
     Route: 065
  26. PRAVACHOL [Concomitant]
     Route: 065

REACTIONS (12)
  - ABDOMINAL DISTENSION [None]
  - BLOOD CHOLESTEROL INCREASED [None]
  - BLOOD TRIGLYCERIDES INCREASED [None]
  - CHEST PAIN [None]
  - CONSTIPATION [None]
  - EXOSTOSIS [None]
  - INTERVERTEBRAL DISC PROTRUSION [None]
  - NEPHROLITHIASIS [None]
  - RECTAL FISTULA REPAIR [None]
  - SKIN NEOPLASM BLEEDING [None]
  - TYPE 2 DIABETES MELLITUS [None]
  - WEIGHT INCREASED [None]
